FAERS Safety Report 10231326 (Version 1)
Quarter: 2014Q2

REPORT INFORMATION
  Report Type: Spontaneous
  Country: DE (occurrence: DE)
  Receive Date: 20140611
  Receipt Date: 20140611
  Transmission Date: 20141212
  Serious: Yes (Other)
  Sender: FDA-Public Use
  Company Number: DE-GLAXOSMITHKLINE-D0084284A

PATIENT
  Sex: Female

DRUGS (6)
  1. BUDES [Suspect]
     Route: 065
  2. SINGULAIR [Suspect]
     Route: 048
  3. AARANE [Concomitant]
     Route: 055
  4. PREDNISOLON [Concomitant]
     Route: 065
  5. VIANI [Suspect]
     Route: 055
  6. VENTOLAIR [Suspect]
     Route: 055

REACTIONS (3)
  - Suicidal ideation [Unknown]
  - Panic attack [Unknown]
  - Obsessive thoughts [Unknown]
